FAERS Safety Report 7941813-9 (Version None)
Quarter: 2011Q4

REPORT INFORMATION
  Report Type: 
  Country: None (occurrence: None)
  Receive Date: 20111128
  Receipt Date: 20111116
  Transmission Date: 20120403
  Serious: Yes (Hospitalization, Other)
  Sender: FDA-Public Use
  Company Number: JP-UCBSA-025010

PATIENT
  Age: 70 Year
  Sex: Female

DRUGS (14)
  1. CELECOXIB [Concomitant]
     Dates: start: 20090324
  2. LIMAPROST ALFADEX [Concomitant]
     Dates: start: 20110408
  3. FOLIC ACID [Concomitant]
     Dates: start: 20071119
  4. LANSOPRAZOLE [Concomitant]
     Indication: GASTRITIS
     Route: 048
     Dates: start: 20071119
  5. LOXOPROFEN SODIUM [Concomitant]
     Dosage: ADEQUATE DOSE AS NEEDED
     Dates: start: 20100727
  6. FELBINAC [Concomitant]
     Dosage: DAILY DOSE: ADEQUATE DOSE
     Dates: start: 20110625
  7. CERTOLIZUMAB PEGOL [Suspect]
     Route: 058
     Dates: start: 20100309, end: 20110722
  8. CERTOLIZUMAB PEGOL [Suspect]
     Dosage: C87041 STUDY
     Route: 058
     Dates: start: 20090825
  9. PREDNISOLONE [Concomitant]
     Indication: RHEUMATOID ARTHRITIS
     Route: 048
     Dates: start: 20081009
  10. SODIUM RISEDRONATE HYDRATE [Concomitant]
     Dates: start: 20090324
  11. CERTOLIZUMAB PEGOL [Suspect]
     Dosage: C87041 STUDY
     Route: 058
     Dates: end: 20100226
  12. CERTOLIZUMAB PEGOL [Suspect]
     Indication: RHEUMATOID ARTHRITIS
     Route: 058
     Dates: start: 20110826
  13. METHOTREXATE [Concomitant]
     Dosage: 8 MG/ WEEK: 4 MG-2 MG -2 MG
     Dates: start: 20090324
  14. LOSARTAN POTASSIUM [Concomitant]
     Dates: start: 20100326

REACTIONS (4)
  - OSTEONECROSIS [None]
  - ARTHRITIS [None]
  - ANKLE FRACTURE [None]
  - DEEP VEIN THROMBOSIS [None]
